FAERS Safety Report 8571381-2 (Version None)
Quarter: 2012Q3

REPORT INFORMATION
  Report Type: 
  Country: None (occurrence: None)
  Receive Date: 20120806
  Receipt Date: 20120802
  Transmission Date: 20120928
  Serious: Yes (Death)
  Sender: FDA-Public Use
  Company Number: DK-JNJFOC-20120801319

PATIENT

DRUGS (23)
  1. CYCLOPHOSPHAMIDE [Suspect]
     Indication: MANTLE CELL LYMPHOMA
     Dosage: DAY 1; CYCLE 5; CHOP REGIMEN
     Route: 065
  2. CYCLOPHOSPHAMIDE [Suspect]
     Dosage: DAY 1; CYCLE 1; CHOP REGIMEN
     Route: 065
  3. PREDNISOLONE [Suspect]
     Dosage: ON DAY 1-5; CYCLE 1
     Route: 065
  4. RITUXIMAB [Suspect]
     Dosage: DAY 1 CYCLE 5
     Route: 065
  5. DOXORUBICIN HCL [Suspect]
     Indication: MANTLE CELL LYMPHOMA
     Dosage: ON DAY 1; CYCLE 3
     Route: 042
  6. CYCLOPHOSPHAMIDE [Suspect]
     Dosage: DAY 2-5 IN BEAC REGIMEN
     Route: 065
  7. VINCRISTINE [Suspect]
     Dosage: ON DAY 1 ; CYCLE 5
     Route: 065
  8. PREDNISOLONE [Suspect]
     Dosage: ON DAY 1-5; CYCLE 3
     Route: 065
  9. CYTARABINE [Suspect]
     Indication: MANTLE CELL LYMPHOMA
     Dosage: 3 OR 2 G/M2, FOUR-3 HOUR INFUSIONS; CYCLE 4
     Route: 065
  10. RITUXIMAB [Suspect]
     Dosage: DAY1 CYCLE 6, ALSO GIVEN ON DAY 9 FOR IN-VIVO PURGING
     Route: 065
  11. PREDNISOLONE [Suspect]
     Indication: MANTLE CELL LYMPHOMA
     Dosage: ON DAY 1-5; CYCLE 5
     Route: 065
  12. CYTARABINE [Suspect]
     Dosage: 3 OR 2 G/M2, FOUR-3 HOUR INFUSIONS; CYCLE 2
     Route: 065
  13. CYTARABINE [Suspect]
     Dosage: DAY 2-5 IN BEAM OR BEAC REGIMEN
     Route: 065
  14. RITUXIMAB [Suspect]
     Indication: MANTLE CELL LYMPHOMA
     Dosage: DAY 1 FROM CYCLE 4
     Route: 065
  15. MELPHALAN HYDROCHLORIDE [Suspect]
     Indication: MANTLE CELL LYMPHOMA
     Dosage: ON DAY 6; BEAM REGIMEN
     Route: 065
  16. CARMUSTINE [Suspect]
     Indication: MANTLE CELL LYMPHOMA
     Dosage: ON DAY 1; BEAM/C
     Route: 065
  17. DOXORUBICIN HCL [Suspect]
     Dosage: ON DAY 1; CYCLE 1
     Route: 042
  18. CYTARABINE [Suspect]
     Dosage: 3 OR 2 G/M2, FOUR-3 HOUR INFUSIONS; CYCLE 6
     Route: 065
  19. ETOPOSIDE [Suspect]
     Indication: MANTLE CELL LYMPHOMA
     Dosage: DAY 2- 5; BEAM/C REGIMEN
     Route: 065
  20. DOXORUBICIN HCL [Suspect]
     Dosage: ON DAY 1; CYCLE 5
     Route: 042
  21. CYCLOPHOSPHAMIDE [Suspect]
     Dosage: DAY 1; CYCLE 3; CHOP REGIMEN
     Route: 065
  22. VINCRISTINE [Suspect]
     Indication: MANTLE CELL LYMPHOMA
     Dosage: ON DAY 1; CYCLE 1
     Route: 065
  23. VINCRISTINE [Suspect]
     Dosage: ON DAY 1; CYCLE 3
     Route: 065

REACTIONS (1)
  - INFECTION [None]
